FAERS Safety Report 10266953 (Version 2)
Quarter: 2014Q2

REPORT INFORMATION
  Report Type: Report from Study
  Country: US (occurrence: US)
  Receive Date: 20140630
  Receipt Date: 20140630
  Transmission Date: 20141212
  Serious: Yes (Hospitalization)
  Sender: FDA-Public Use
  Company Number: US-BIOGENIDEC-2013BI011466

PATIENT
  Age: 29 Year
  Sex: Male
  Weight: 72 kg

DRUGS (8)
  1. RFVIIIFC [Suspect]
     Indication: FACTOR VIII DEFICIENCY
     Dates: start: 20110613
  2. CELEBREX [Concomitant]
     Indication: ANTIINFLAMMATORY THERAPY
     Route: 048
     Dates: start: 20111110
  3. MORPHINE [Concomitant]
     Indication: PAIN
     Route: 048
     Dates: start: 20130130
  4. MORPHINE [Concomitant]
     Indication: PAIN
     Route: 048
     Dates: start: 20130130
  5. MORPHINE [Concomitant]
     Indication: PAIN
  6. MORPHINE [Concomitant]
     Indication: PAIN
  7. GABAPENTIN [Concomitant]
  8. SODIUM CHLORIDE [Concomitant]

REACTIONS (1)
  - Nerve compression [Unknown]
